FAERS Safety Report 10665476 (Version 1)
Quarter: 2014Q4

REPORT INFORMATION
  Report Type: Report from Study
  Country: AR (occurrence: AR)
  Receive Date: 20141219
  Receipt Date: 20141219
  Transmission Date: 20150529
  Serious: Yes (Death, Other)
  Sender: FDA-Public Use
  Company Number: PHHY2014AR165626

PATIENT
  Sex: Female

DRUGS (1)
  1. DIOVAN [Suspect]
     Active Substance: VALSARTAN
     Indication: PRODUCT USED FOR UNKNOWN INDICATION
     Dosage: UNK
     Route: 065
     Dates: start: 2007

REACTIONS (6)
  - Metastases to liver [Unknown]
  - Musculoskeletal disorder [Unknown]
  - Respiratory failure [Fatal]
  - Colon cancer [Unknown]
  - Thyroid cancer [Unknown]
  - Neoplasm malignant [Unknown]
